FAERS Safety Report 25897235 (Version 1)
Quarter: 2025Q4

REPORT INFORMATION
  Report Type: Spontaneous
  Country: US (occurrence: US)
  Receive Date: 20251008
  Receipt Date: 20251008
  Transmission Date: 20260117
  Serious: No
  Sender: TEVA
  Company Number: US-TEVA-VS-3370816

PATIENT
  Age: 28 Year
  Sex: Male

DRUGS (3)
  1. AUSTEDO [Suspect]
     Active Substance: DEUTETRABENAZINE
     Indication: Dystonia
     Dosage: 1 TABLET EVERY DAY
     Route: 065
  2. AUSTEDO [Suspect]
     Active Substance: DEUTETRABENAZINE
     Indication: Dystonia
     Dosage: ON SEPTEMBER 19TH
     Route: 065
  3. AUSTEDO [Suspect]
     Active Substance: DEUTETRABENAZINE
     Indication: Dystonia
     Dosage: ON SEPTEMBER 26TH
     Route: 065

REACTIONS (4)
  - Somnolence [Unknown]
  - Off label use [Unknown]
  - Therapeutic response delayed [Unknown]
  - Off label use [Unknown]
